FAERS Safety Report 7418779-3 (Version None)
Quarter: 2011Q2

REPORT INFORMATION
  Report Type: 
  Country: None (occurrence: None)
  Receive Date: 20110407
  Receipt Date: 20110303
  Transmission Date: 20111010
  Serious: Yes (Life-Threatening, Hospitalization, Other)
  Sender: FDA-Public Use
  Company Number: 2011SP014941

PATIENT
  Sex: Male

DRUGS (2)
  1. INTEGRILIN [Suspect]
     Indication: MYOCARDIAL INFARCTION
     Dosage: 180 MCG; IV
     Route: 042
  2. HEPARIN [Concomitant]

REACTIONS (2)
  - ACUTE CORONARY SYNDROME [None]
  - PLATELET COUNT DECREASED [None]
